FAERS Safety Report 12174977 (Version 3)
Quarter: 2016Q3

REPORT INFORMATION
  Report Type: Spontaneous
  Country: US (occurrence: US)
  Receive Date: 20160314
  Receipt Date: 20160727
  Transmission Date: 20161109
  Serious: Yes (Hospitalization, Other)
  Sender: FDA-Public Use
  Company Number: US-GLAXOSMITHKLINE-US2016033295

PATIENT
  Age: 69 Year
  Sex: Female

DRUGS (14)
  1. KLONOPIN [Concomitant]
     Active Substance: CLONAZEPAM
  2. REQUIP [Suspect]
     Active Substance: ROPINIROLE HYDROCHLORIDE
     Indication: ESSENTIAL TREMOR
  3. REQUIP [Suspect]
     Active Substance: ROPINIROLE HYDROCHLORIDE
     Indication: PARKINSON^S DISEASE
     Dosage: 2 MG, TID
     Route: 048
  4. VENTOLIN HFA [Suspect]
     Active Substance: ALBUTEROL SULFATE
     Indication: EMPHYSEMA
  5. CARBIDOPA. [Concomitant]
     Active Substance: CARBIDOPA
  6. ADVAIR DISKUS [Suspect]
     Active Substance: FLUTICASONE PROPIONATE\SALMETEROL XINAFOATE
     Indication: CHRONIC OBSTRUCTIVE PULMONARY DISEASE
     Dosage: UNK UNK, BID
     Route: 055
  7. VENTOLIN HFA [Suspect]
     Active Substance: ALBUTEROL SULFATE
     Indication: CHRONIC OBSTRUCTIVE PULMONARY DISEASE
     Dosage: 2 PUFF(S), PRN
  8. TIZANIDINE. [Concomitant]
     Active Substance: TIZANIDINE
  9. ADVAIR DISKUS [Suspect]
     Active Substance: FLUTICASONE PROPIONATE\SALMETEROL XINAFOATE
     Indication: EMPHYSEMA
     Dosage: 1 PUFF(S), BID
  10. REQUIP [Suspect]
     Active Substance: ROPINIROLE HYDROCHLORIDE
     Indication: RESTLESS LEGS SYNDROME
  11. REQUIP XL [Suspect]
     Active Substance: ROPINIROLE HYDROCHLORIDE
     Indication: RESTLESS LEGS SYNDROME
     Dosage: 2 MG, QD
     Dates: start: 201606
  12. LEVOTHYROXINE. [Concomitant]
     Active Substance: LEVOTHYROXINE
  13. LOVASTATIN. [Concomitant]
     Active Substance: LOVASTATIN
  14. FUROSEMIDE. [Concomitant]
     Active Substance: FUROSEMIDE

REACTIONS (17)
  - Hip arthroplasty [Unknown]
  - Bladder catheterisation [Unknown]
  - Cystitis [Unknown]
  - Memory impairment [Unknown]
  - Hyperhidrosis [Unknown]
  - Fall [Not Recovered/Not Resolved]
  - Nausea [Not Recovered/Not Resolved]
  - Knee arthroplasty [Unknown]
  - Emphysema [Unknown]
  - Asthenia [Not Recovered/Not Resolved]
  - Muscle spasms [Recovered/Resolved]
  - Vertebral osteophyte [Unknown]
  - Bronchitis [Unknown]
  - Lip blister [Unknown]
  - Oral mucosal blistering [Unknown]
  - Spinal operation [Recovered/Resolved]
  - Back injury [Not Recovered/Not Resolved]

NARRATIVE: CASE EVENT DATE: 201511
